FAERS Safety Report 8508791-5 (Version None)
Quarter: 2012Q3

REPORT INFORMATION
  Report Type: 
  Country: None (occurrence: None)
  Receive Date: 20120713
  Receipt Date: 20120705
  Transmission Date: 20120928
  Serious: Yes (Other)
  Sender: FDA-Public Use
  Company Number: FR-JNJFOC-20120606204

PATIENT
  Age: 43 Year
  Sex: Male
  Weight: 70 kg

DRUGS (2)
  1. REMICADE [Suspect]
     Indication: CROHN'S DISEASE
     Dosage: 23RD INFUSION
     Route: 042
     Dates: start: 20120413, end: 20120608
  2. REMICADE [Suspect]
     Dosage: HAD ALREADY RECEIVED 21 INFLIXIMAB INFUSIONS
     Route: 042

REACTIONS (2)
  - HENOCH-SCHONLEIN PURPURA [None]
  - CROHN'S DISEASE [None]
